FAERS Safety Report 4741104-3 (Version None)
Quarter: 2005Q3

REPORT INFORMATION
  Report Type: 
  Country: None (occurrence: None)
  Receive Date: 20050803
  Receipt Date: 20040520
  Transmission Date: 20060218
  Serious: Yes (Disabling)
  Sender: FDA-Public Use
  Company Number: 2004-10-0599

PATIENT
  Age: 36 Year
  Sex: Male
  Weight: 82.5547 kg

DRUGS (1)
  1. INTRON A [Suspect]
     Indication: MALIGNANT MELANOMA
     Dosage: 40 MIUQD5D/WK INTRAVENOU
     Route: 042
     Dates: start: 20040412, end: 20040507

REACTIONS (2)
  - BURNING SENSATION [None]
  - NEUROPATHY PERIPHERAL [None]
